FAERS Safety Report 19874804 (Version 1)
Quarter: 2021Q3

REPORT INFORMATION
  Report Type: Report from Study
  Country: None (occurrence: BR)
  Receive Date: 20210922
  Receipt Date: 20210922
  Transmission Date: 20211014
  Serious: Yes (Hospitalization, Disabling, Other)
  Sender: FDA-Public Use
  Company Number: BR-ABBVIE-21K-020-4083825-00

PATIENT
  Age: 67 Year
  Sex: Female
  Weight: 68 kg

DRUGS (5)
  1. HUMIRA [Suspect]
     Active Substance: ADALIMUMAB
     Route: 058
  2. COVID?19 VACCINE [Concomitant]
     Dosage: SECOND DOSE
  3. HUMIRA [Suspect]
     Active Substance: ADALIMUMAB
     Indication: CROHN^S DISEASE
     Dosage: UNSPECIFIED DOSE?LOADING DOSE
     Route: 058
     Dates: start: 20170810, end: 20170810
  4. HUMIRA [Suspect]
     Active Substance: ADALIMUMAB
     Route: 058
  5. COVID?19 VACCINE [Concomitant]
     Indication: COVID-19 IMMUNISATION
     Dosage: FIRST DOSE

REACTIONS (20)
  - Cataract [Unknown]
  - Vitreous floaters [Not Recovered/Not Resolved]
  - Eye pain [Unknown]
  - Maculopathy [Unknown]
  - Blindness [Unknown]
  - Headache [Unknown]
  - Nausea [Unknown]
  - Dizziness [Unknown]
  - Hypovitaminosis [Unknown]
  - Photopsia [Unknown]
  - Macular detachment [Unknown]
  - Tuberculosis [Not Recovered/Not Resolved]
  - Eye pruritus [Not Recovered/Not Resolved]
  - Tuberculosis [Recovered/Resolved with Sequelae]
  - Blood pressure increased [Unknown]
  - Dysstasia [Unknown]
  - Blood iron decreased [Unknown]
  - Cataract [Not Recovered/Not Resolved]
  - Pain [Unknown]
  - Mobility decreased [Unknown]

NARRATIVE: CASE EVENT DATE: 201911
